FAERS Safety Report 17492610 (Version 1)
Quarter: 2020Q1

REPORT INFORMATION
  Report Type: Spontaneous
  Country: GB (occurrence: GB)
  Receive Date: 20200304
  Receipt Date: 20200304
  Transmission Date: 20200409
  Serious: Yes (Death)
  Sender: FDA-Public Use
  Company Number: GB-REGENERON PHARMACEUTICALS, INC.-2020-22391

PATIENT

DRUGS (1)
  1. EYLEA [Suspect]
     Active Substance: AFLIBERCEPT
     Indication: MACULAR DEGENERATION
     Route: 051
     Dates: start: 20181018, end: 20190706

REACTIONS (3)
  - Contraindicated product prescribed [Fatal]
  - Pulmonary embolism [Fatal]
  - Fatigue [Fatal]
